FAERS Safety Report 5054990-7 (Version None)
Quarter: 2006Q3

REPORT INFORMATION
  Report Type: 
  Country: None (occurrence: None)
  Receive Date: 20060719
  Receipt Date: 20060615
  Transmission Date: 20061208
  Serious: Yes (Hospitalization)
  Sender: FDA-Public Use
  Company Number: JP-JPN-A200602080

PATIENT
  Age: 91 Year
  Sex: Female
  Weight: 35 kg

DRUGS (4)
  1. VALTREX [Suspect]
     Indication: HERPES ZOSTER
     Dosage: 500MG SEE DOSAGE TEXT
     Route: 048
     Dates: start: 20060612, end: 20060620
  2. THYRADIN S [Concomitant]
     Indication: THYROID MASS
     Dosage: 25MCG PER DAY
     Route: 048
  3. PRONON [Concomitant]
     Indication: ATRIAL FIBRILLATION
     Dosage: 150MG TWICE PER DAY
     Route: 048
  4. CALTAN [Concomitant]
     Dosage: 1.8G PER DAY
     Route: 048

REACTIONS (4)
  - DYSARTHRIA [None]
  - HALLUCINATION [None]
  - OVERDOSE [None]
  - TOXIC INDUCED ENCEPHALOPATHY [None]
